FAERS Safety Report 16223917 (Version 1)
Quarter: 2019Q2

REPORT INFORMATION
  Report Type: Spontaneous
  Country: ES (occurrence: ES)
  Receive Date: 20190422
  Receipt Date: 20190422
  Transmission Date: 20190711
  Serious: Yes (Other)
  Sender: FDA-Public Use
  Company Number: ES-JUBILANT CADISTA PHARMACEUTICALS-2019JUB00150

PATIENT
  Age: 31 Year
  Sex: Female

DRUGS (3)
  1. INTERFERON BETA NOS [Concomitant]
     Active Substance: INTERFERON BETA
     Route: 065
  2. METHYLPREDNISOLONE. [Suspect]
     Active Substance: METHYLPREDNISOLONE
     Indication: MULTIPLE SCLEROSIS RELAPSE
     Dosage: 300 MG, 1X/DAY
     Route: 042
     Dates: start: 20080513, end: 20080515
  3. GLATIMER ACETATE [Concomitant]
     Active Substance: GLATIRAMER ACETATE
     Route: 065

REACTIONS (1)
  - Drug-induced liver injury [Recovered/Resolved]

NARRATIVE: CASE EVENT DATE: 2008
